FAERS Safety Report 24120981 (Version 2)
Quarter: 2024Q4

REPORT INFORMATION
  Report Type: Spontaneous
  Country: US (occurrence: US)
  Receive Date: 20240722
  Receipt Date: 20241216
  Transmission Date: 20250115
  Serious: No
  Sender: PFIZER
  Company Number: US-PFIZER INC-PV202400094340

PATIENT
  Age: 59 Year
  Sex: Female

DRUGS (3)
  1. IBRANCE [Suspect]
     Active Substance: PALBOCICLIB
     Indication: Breast cancer female
     Dosage: 125 MG, CYCLIC (DAYS 1-21/28 DAY CYCLE)
     Route: 048
     Dates: start: 20220920
  2. EXEMESTANE [Suspect]
     Active Substance: EXEMESTANE
     Indication: Breast cancer metastatic
     Dosage: 25 MG, DAILY
     Route: 048
     Dates: start: 20220721
  3. XGEVA [Concomitant]
     Active Substance: DENOSUMAB
     Indication: Bone lesion
     Dosage: EVERY 3 MONTHS

REACTIONS (1)
  - Carbohydrate antigen 27.29 increased [Recovering/Resolving]

NARRATIVE: CASE EVENT DATE: 20220729
